FAERS Safety Report 18357587 (Version 1)
Quarter: 2020Q4

REPORT INFORMATION
  Report Type: Spontaneous
  Country: US (occurrence: US)
  Receive Date: 20201008
  Receipt Date: 20201008
  Transmission Date: 20210114
  Serious: No
  Sender: FDA-Public Use
  Company Number: NVSC2020US265632

PATIENT
  Sex: Female

DRUGS (2)
  1. LENVIMA [Suspect]
     Active Substance: LENVATINIB
     Indication: RENAL CANCER
     Dosage: UNK
     Route: 065
     Dates: start: 20200911
  2. AFINITOR [Suspect]
     Active Substance: EVEROLIMUS
     Indication: RENAL CANCER
     Dosage: UNK
     Route: 065

REACTIONS (7)
  - Muscle discomfort [Unknown]
  - Musculoskeletal discomfort [Unknown]
  - Paranasal sinus discomfort [Unknown]
  - Somnolence [Unknown]
  - Tenderness [Unknown]
  - Gait disturbance [Unknown]
  - Hypogeusia [Unknown]
